FAERS Safety Report 7433897-1 (Version None)
Quarter: 2011Q2

REPORT INFORMATION
  Report Type: 
  Country: None (occurrence: None)
  Receive Date: 20110425
  Receipt Date: 20110415
  Transmission Date: 20111010
  Serious: Yes (Hospitalization)
  Sender: FDA-Public Use
  Company Number: US-ELI_LILLY_AND_COMPANY-US201104005532

PATIENT
  Sex: Female

DRUGS (7)
  1. FORTEO [Suspect]
     Indication: OSTEOPOROSIS
     Dosage: 20 UG, QD
     Dates: start: 20110315
  2. OXYGEN [Concomitant]
  3. ADVAIR HFA [Concomitant]
  4. DOXYCYCLINE [Concomitant]
  5. LEVOTHYROXINE SODIUM [Concomitant]
  6. PREDNISONE [Concomitant]
  7. SPIRIVA [Concomitant]

REACTIONS (4)
  - COUGH [None]
  - NASOPHARYNGITIS [None]
  - DYSPNOEA [None]
  - FATIGUE [None]
